FAERS Safety Report 8359613-7 (Version None)
Quarter: 2012Q2

REPORT INFORMATION
  Report Type: 
  Country: None (occurrence: None)
  Receive Date: 20120515
  Receipt Date: 20120507
  Transmission Date: 20120825
  Serious: Yes (Hospitalization)
  Sender: FDA-Public Use
  Company Number: DE-PFIZER INC-2012071691

PATIENT
  Age: 67 Year
  Sex: Female
  Weight: 70 kg

DRUGS (2)
  1. IBUPROFEN [Suspect]
     Dosage: UNK
  2. AROMASIN [Suspect]
     Indication: BREAST CANCER
     Dosage: 25 MG, 1X/DAY
     Route: 048
     Dates: start: 20091022, end: 20120215

REACTIONS (1)
  - RENAL FAILURE [None]
